FAERS Safety Report 10033969 (Version 1)
Quarter: 2014Q1

REPORT INFORMATION
  Report Type: Spontaneous
  Country: US (occurrence: None)
  Receive Date: 20140324
  Receipt Date: 20140324
  Transmission Date: 20141002
  Serious: Yes (Disabling)
  Sender: FDA-Public Use
  Company Number: None

PATIENT
  Age: 68 Year
  Sex: Female
  Weight: 86.18 kg

DRUGS (1)
  1. ARMOUR THYROID [Suspect]
     Indication: HYPOTHYROIDISM
     Dosage: 1 PILL IN AM ONCE DAILY TAKEN BY MOUTH
     Route: 048
     Dates: start: 20130330, end: 20140321

REACTIONS (2)
  - Diarrhoea [None]
  - Product odour abnormal [None]
